FAERS Safety Report 18883644 (Version 1)
Quarter: 2021Q1

REPORT INFORMATION
  Report Type: Spontaneous
  Country: US (occurrence: US)
  Receive Date: 20210211
  Receipt Date: 20210211
  Transmission Date: 20210420
  Serious: Yes (Other)
  Sender: FDA-Public Use
  Company Number: US-TEVA-2021-US-1877573

PATIENT
  Age: 76 Year
  Sex: Male

DRUGS (11)
  1. WARFARIN [Suspect]
     Active Substance: WARFARIN
     Indication: ATRIAL FIBRILLATION
     Route: 065
  2. ASPIRIN. [Suspect]
     Active Substance: ASPIRIN
     Indication: ATRIAL FIBRILLATION
     Route: 065
  3. WARFARIN [Suspect]
     Active Substance: WARFARIN
     Indication: CEREBROVASCULAR ACCIDENT
  4. DESMOPRESSIN [Suspect]
     Active Substance: DESMOPRESSIN
     Indication: PROPHYLAXIS
     Dosage: USED INTRAOPERATIVELY
     Route: 065
  5. PROTHROMBIN COMPLEX CONCENTRATE NOS [Suspect]
     Active Substance: COAGULATION FACTOR IX HUMAN\COAGULATION FACTOR VII HUMAN\COAGULATION FACTOR X HUMAN\PROTHROMBIN
     Indication: PROPHYLAXIS
     Dosage: TOTAL DOSE: 1500 UNITS (500 UNITS INTRAOPERATIVELY, 1000 UNITS ON POST OPERATIVE DAY 0, AND 500 U...
     Route: 065
  6. CLOPIDOGREL [Suspect]
     Active Substance: CLOPIDOGREL BISULFATE
     Indication: CEREBROVASCULAR ACCIDENT
  7. PROTAMINE [Suspect]
     Active Substance: PROTAMINE
     Indication: PROPHYLAXIS
     Dosage: USED INTRAOPERATIVELY
     Route: 065
  8. EPOETIN [Suspect]
     Active Substance: ERYTHROPOIETIN
     Indication: PRODUCT USED FOR UNKNOWN INDICATION
     Dosage: 20000 UNITS DAILY ON POST OPERATIVE DAT 1 TO 4
     Route: 065
  9. CLOPIDOGREL [Suspect]
     Active Substance: CLOPIDOGREL BISULFATE
     Indication: ATRIAL FIBRILLATION
     Route: 065
  10. ASPIRIN. [Suspect]
     Active Substance: ASPIRIN
     Indication: CEREBROVASCULAR ACCIDENT
  11. AMINOCAPROIC ACID. [Suspect]
     Active Substance: AMINOCAPROIC ACID
     Indication: PROPHYLAXIS
     Dosage: USED INTRAOPERATIVELY
     Route: 065

REACTIONS (4)
  - Deep vein thrombosis [Unknown]
  - Acute kidney injury [Unknown]
  - Off label use [Unknown]
  - Haemorrhage [Unknown]
